FAERS Safety Report 19758135 (Version 1)
Quarter: 2021Q3

REPORT INFORMATION
  Report Type: Spontaneous
  Country: IN (occurrence: IN)
  Receive Date: 20210828
  Receipt Date: 20210828
  Transmission Date: 20211014
  Serious: Yes (Other)
  Sender: FDA-Public Use
  Company Number: IN-SETONPHARMA-2021SETLIT00006

PATIENT
  Age: 39 Year
  Sex: Female

DRUGS (6)
  1. DOXORUBICIN [Suspect]
     Active Substance: DOXORUBICIN
     Indication: DIFFUSE LARGE B-CELL LYMPHOMA
     Dosage: 50 MG/ M2 ON DAY 1
     Route: 065
  2. VINCRISTINE [Suspect]
     Active Substance: VINCRISTINE
     Indication: DIFFUSE LARGE B-CELL LYMPHOMA
     Dosage: 1.4 MG/M2 ON DAY 1
     Route: 065
  3. PREDNISOLONE. [Suspect]
     Active Substance: PREDNISOLONE
     Indication: DIFFUSE LARGE B-CELL LYMPHOMA
     Dosage: 100 MG ON DAYS 1?5
     Route: 065
  4. CHLORAMBUCIL [Suspect]
     Active Substance: CHLORAMBUCIL
     Indication: FOLLICULAR LYMPHOMA
     Route: 065
  5. CYCLOPHOSPHAMIDE. [Suspect]
     Active Substance: CYCLOPHOSPHAMIDE
     Indication: DIFFUSE LARGE B-CELL LYMPHOMA
     Dosage: 750 MG/M2 ON DAY 1
     Route: 065
  6. PREDNISOLONE. [Suspect]
     Active Substance: PREDNISOLONE
     Indication: FOLLICULAR LYMPHOMA
     Route: 065

REACTIONS (10)
  - Swelling [Recovering/Resolving]
  - Lymphadenopathy [Recovering/Resolving]
  - Follicular lymphoma stage IV [Recovering/Resolving]
  - Parotid gland enlargement [Recovering/Resolving]
  - Abdominal distension [Recovered/Resolved]
  - Pyrexia [Recovering/Resolving]
  - Anaemia [Recovering/Resolving]
  - Diffuse large B-cell lymphoma [Recovering/Resolving]
  - Ascites [Recovering/Resolving]
  - Weight decreased [Recovering/Resolving]
